FAERS Safety Report 14258963 (Version 4)
Quarter: 2018Q1

REPORT INFORMATION
  Report Type: Report from Study
  Country: BR (occurrence: BR)
  Receive Date: 20171207
  Receipt Date: 20180131
  Transmission Date: 20180508
  Serious: Yes (Other)
  Sender: FDA-Public Use
  Company Number: PHHY2017BR169619

PATIENT
  Sex: Female
  Weight: 66.2 kg

DRUGS (5)
  1. VOTRIENT [Suspect]
     Active Substance: PAZOPANIB HYDROCHLORIDE
     Indication: RENAL CANCER METASTATIC
     Dosage: 400 MG, BID (ONE IN MORNING AND ANOTHER ONE IN NIGHT)(2 TABLET A DAY)
     Route: 048
     Dates: start: 201707
  2. LOSARTAN. [Concomitant]
     Active Substance: LOSARTAN
     Indication: HYPERTENSION
     Dosage: 2 DF, QD
     Route: 048
  3. PURAN [Concomitant]
     Active Substance: LEVOTHYROXINE SODIUM
     Indication: THYROID DISORDER
     Dosage: 1 DF, QD
     Route: 048
  4. VOTRIENT [Suspect]
     Active Substance: PAZOPANIB HYDROCHLORIDE
     Dosage: 1 DF, QD
     Route: 048
     Dates: start: 201708
  5. VOTRIENT [Suspect]
     Active Substance: PAZOPANIB HYDROCHLORIDE
     Dosage: 0.5 DF, QD
     Route: 048
     Dates: start: 201709

REACTIONS (19)
  - Peripheral swelling [Unknown]
  - Abdominal pain upper [Unknown]
  - Headache [Unknown]
  - Dysgeusia [Unknown]
  - Malaise [Recovering/Resolving]
  - Nausea [Unknown]
  - Paraesthesia [Unknown]
  - Pain in extremity [Recovering/Resolving]
  - Pain [Unknown]
  - Back pain [Recovering/Resolving]
  - Burning sensation [Unknown]
  - Restlessness [Unknown]
  - Asthenia [Unknown]
  - Musculoskeletal pain [Recovering/Resolving]
  - Feeling abnormal [Unknown]
  - Dysstasia [Unknown]
  - Flatulence [Unknown]
  - Fatigue [Unknown]
  - Weight decreased [Unknown]
